FAERS Safety Report 21969744 (Version 1)
Quarter: 2023Q1

REPORT INFORMATION
  Report Type: Spontaneous
  Country: US (occurrence: US)
  Receive Date: 20230208
  Receipt Date: 20230208
  Transmission Date: 20230418
  Serious: Yes (Life-Threatening, Hospitalization, Other)
  Sender: FDA-Public Use
  Company Number: US-MALLINCKRODT-T202300949

PATIENT
  Age: 49 Year
  Sex: Female

DRUGS (1)
  1. OFIRMEV [Suspect]
     Active Substance: ACETAMINOPHEN
     Indication: Pyrexia
     Dosage: UNK
     Route: 042

REACTIONS (2)
  - Type I hypersensitivity [Recovering/Resolving]
  - Condition aggravated [Recovering/Resolving]
